FAERS Safety Report 10367273 (Version 1)
Quarter: 2014Q3

REPORT INFORMATION
  Report Type: Spontaneous
  Country: US (occurrence: US)
  Receive Date: 20140807
  Receipt Date: 20140807
  Transmission Date: 20150326
  Serious: No
  Sender: FDA-Public Use
  Company Number: US-009507513-1407USA007136

PATIENT
  Sex: Male

DRUGS (1)
  1. PROPECIA [Suspect]
     Active Substance: FINASTERIDE
     Dosage: 1MG / ONE TABLET ONCE DAILY
     Route: 048
     Dates: start: 2005

REACTIONS (2)
  - No adverse event [Unknown]
  - Product taste abnormal [Unknown]
